FAERS Safety Report 17183560 (Version 5)
Quarter: 2020Q3

REPORT INFORMATION
  Report Type: Spontaneous
  Country: JP (occurrence: JP)
  Receive Date: 20191220
  Receipt Date: 20200728
  Transmission Date: 20201102
  Serious: Yes (Life-Threatening, Other)
  Sender: FDA-Public Use
  Company Number: JP-ACTELION-A-CH2019-195952

PATIENT
  Age: 24 Year
  Sex: Female
  Weight: 51 kg

DRUGS (36)
  1. OPSUMIT [Suspect]
     Active Substance: MACITENTAN
     Indication: PULMONARY ARTERIAL HYPERTENSION
     Dosage: 5 MG, BID
     Route: 048
     Dates: start: 20190327
  2. CARBOCISTEINE [Concomitant]
     Active Substance: CARBOCYSTEINE
     Indication: BRONCHITIS
     Dosage: 1500 MG, QD
     Dates: end: 20190425
  3. K SUPPLY [Concomitant]
     Active Substance: POTASSIUM CHLORIDE
     Indication: HYPOKALAEMIA
     Dosage: 1200 MG, QD
     Dates: start: 20190507
  4. UPTRAVI [Suspect]
     Active Substance: SELEXIPAG
     Indication: PULMONARY ARTERIAL HYPERTENSION
     Dosage: 0.2 MG, BID
     Route: 048
     Dates: start: 20190417
  5. AZOSEMIDE [Suspect]
     Active Substance: AZOSEMIDE
     Dosage: 15 MG, QD
     Route: 048
     Dates: start: 20190507
  6. INOVAN [Concomitant]
     Active Substance: DOPAMINE HYDROCHLORIDE
  7. REMIFENTANIL [Concomitant]
     Active Substance: REMIFENTANIL
  8. NORADRENALINE [Concomitant]
     Active Substance: NOREPINEPHRINE
  9. EPOPROSTENOL ACT [Suspect]
     Active Substance: EPOPROSTENOL
     Indication: PULMONARY ARTERIAL HYPERTENSION
     Dosage: 4.4 NG/KG, PER MIN
     Route: 042
  10. ADCIRCA [Suspect]
     Active Substance: TADALAFIL
     Indication: PULMONARY ARTERIAL HYPERTENSION
     Dosage: 2.5?40 MG BID
     Route: 048
     Dates: start: 20190319
  11. FEBURIC [Suspect]
     Active Substance: FEBUXOSTAT
     Indication: HYPERURICAEMIA
     Dosage: 10 MG, QD
     Route: 048
     Dates: start: 20190424, end: 20190428
  12. MEDICON [Concomitant]
     Active Substance: DEXTROMETHORPHAN HYDROBROMIDE
     Indication: BRONCHITIS
     Dosage: 45 MG, QD
     Dates: end: 20190425
  13. OPSUMIT [Suspect]
     Active Substance: MACITENTAN
     Dosage: 5 MG, QD
     Route: 048
     Dates: start: 20190326
  14. EPOPROSTENOL ACT [Suspect]
     Active Substance: EPOPROSTENOL
     Dosage: 5.25 NG/KG, PER MIN
     Route: 042
     Dates: end: 20190419
  15. SPIRONOLACTONE. [Suspect]
     Active Substance: SPIRONOLACTONE
     Indication: CARDIAC FAILURE
     Dosage: 25 MG, QD
     Route: 048
     Dates: start: 20190327, end: 20190507
  16. LANSOPRAZOLE. [Concomitant]
     Active Substance: LANSOPRAZOLE
     Dosage: 15 MG, QD
     Dates: end: 20190507
  17. FERROUS CITRATE NA [Concomitant]
     Active Substance: SODIUM FERROUS CITRATE
     Indication: ANAEMIA
     Dosage: 100 MG, QD
     Dates: start: 20190703
  18. FESIN [Concomitant]
  19. ATONIN?O [Concomitant]
     Active Substance: OXYTOCIN
  20. VICCILLIN [Concomitant]
     Active Substance: AMPICILLIN
  21. PRECEDEX [Concomitant]
     Active Substance: DEXMEDETOMIDINE HYDROCHLORIDE
  22. AZOSEMIDE [Suspect]
     Active Substance: AZOSEMIDE
     Indication: CARDIAC FAILURE
     Dosage: 15?30 MG QD
     Route: 048
     Dates: start: 20190403, end: 20190426
  23. MILRINONE [Concomitant]
     Active Substance: MILRINONE
  24. HEPARIN [Concomitant]
     Active Substance: HEPARIN SODIUM
  25. GENTACIN [Concomitant]
     Active Substance: GENTAMICIN SULFATE
  26. TADALAFIL. [Concomitant]
     Active Substance: TADALAFIL
  27. EPOPROSTENOL ACT [Suspect]
     Active Substance: EPOPROSTENOL
     Dosage: 3.9 NG/KG, PER MIN
     Route: 042
     Dates: start: 20190323
  28. MIRTAZAPINE. [Concomitant]
     Active Substance: MIRTAZAPINE
  29. NITRIC OXIDE. [Concomitant]
     Active Substance: NITRIC OXIDE
  30. FENTANYL. [Concomitant]
     Active Substance: FENTANYL
  31. CEFAZOLIN NA [Concomitant]
     Active Substance: CEFAZOLIN SODIUM
  32. DOBUPUM [Concomitant]
     Active Substance: DOBUTAMINE HYDROCHLORIDE
  33. LIXIANA [Suspect]
     Active Substance: EDOXABAN TOSYLATE
     Indication: JUGULAR VEIN THROMBOSIS
     Dosage: 30 MG, QD
     Route: 048
     Dates: start: 20190418, end: 20190507
  34. DOPAMINE [Concomitant]
     Active Substance: DOPAMINE HYDROCHLORIDE
  35. DOBUTAMINE [Concomitant]
     Active Substance: DOBUTAMINE HYDROCHLORIDE
  36. FUROSEMIDE. [Concomitant]
     Active Substance: FUROSEMIDE

REACTIONS (11)
  - Condition aggravated [Recovering/Resolving]
  - Liver disorder [Recovered/Resolved]
  - Pulmonary oedema [Recovering/Resolving]
  - Platelet transfusion [Unknown]
  - Gamma-glutamyltransferase [Recovered/Resolved]
  - Headache [Recovering/Resolving]
  - Platelet count decreased [Recovering/Resolving]
  - Diarrhoea [Recovering/Resolving]
  - Alanine aminotransferase increased [Recovered/Resolved]
  - Aspartate aminotransferase increased [Recovered/Resolved]
  - Oxygen saturation decreased [Recovering/Resolving]

NARRATIVE: CASE EVENT DATE: 20190328
